FAERS Safety Report 8920840 (Version 1)
Quarter: 2012Q4

REPORT INFORMATION
  Report Type: 
  Country: US (occurrence: US)
  Receive Date: 20121121
  Receipt Date: 20121121
  Transmission Date: 20130627
  Serious: No
  Sender: FDA-Public Use
  Company Number: US-PFIZER INC-2012291153

PATIENT
  Age: 52 Year
  Sex: Female
  Weight: 58.96 kg

DRUGS (2)
  1. LYRICA [Suspect]
     Indication: PAIN
     Dosage: UNK, daily
     Dates: end: 2012
  2. CELEBREX [Concomitant]
     Indication: PAIN
     Dosage: UNK

REACTIONS (1)
  - Abdominal distension [Recovered/Resolved]
